FAERS Safety Report 9885247 (Version 2)
Quarter: 2014Q2

REPORT INFORMATION
  Report Type: Spontaneous
  Country: US (occurrence: US)
  Receive Date: 20140210
  Receipt Date: 20140430
  Transmission Date: 20141212
  Serious: No
  Sender: FDA-Public Use
  Company Number: US-PFIZER INC-2014037177

PATIENT
  Age: 56 Year
  Sex: Female

DRUGS (10)
  1. NEURONTIN [Suspect]
     Dosage: UNK
     Dates: end: 20130401
  2. AMBIEN [Concomitant]
     Dosage: UNK
  3. LEXAPRO [Concomitant]
     Dosage: UNK
  4. PAXIL [Concomitant]
     Dosage: UNK
  5. LORTAB [Concomitant]
     Dosage: UNK
  6. CYMBALTA [Concomitant]
     Dosage: UNK
  7. XANAX [Concomitant]
     Dosage: UNK
  8. ORPHENADRINE [Concomitant]
     Dosage: UNK
  9. MELOXICAM [Concomitant]
     Dosage: UNK
  10. CORTISONE [Concomitant]
     Dosage: UNK

REACTIONS (5)
  - Anxiety [Unknown]
  - Feeling abnormal [Unknown]
  - Fumbling [Unknown]
  - Musculoskeletal pain [Unknown]
  - Limb discomfort [Unknown]
